FAERS Safety Report 21273986 (Version 7)
Quarter: 2022Q4

REPORT INFORMATION
  Report Type: Report from Study
  Country: US (occurrence: US)
  Receive Date: 20220831
  Receipt Date: 20221219
  Transmission Date: 20230113
  Serious: No
  Sender: FDA-Public Use
  Company Number: US-AMGEN-USASL2022139899

PATIENT
  Age: 75 Year
  Sex: Male

DRUGS (3)
  1. NEULASTA [Suspect]
     Active Substance: PEGFILGRASTIM
     Indication: Agranulocytosis
     Dosage: 6 MILLIGRAM
     Route: 065
  2. NEULASTA [Suspect]
     Active Substance: PEGFILGRASTIM
     Dosage: 6 MILLIGRAM
     Route: 065
  3. NEULASTA [Suspect]
     Active Substance: PEGFILGRASTIM
     Dosage: 6 MILLIGRAM
     Route: 065

REACTIONS (3)
  - Device malfunction [Unknown]
  - Drug dose omission by device [Unknown]
  - Unintentional medical device removal [Unknown]

NARRATIVE: CASE EVENT DATE: 20220101
